FAERS Safety Report 9174518 (Version 1)
Quarter: 2013Q1

REPORT INFORMATION
  Report Type: Spontaneous
  Country: US (occurrence: None)
  Receive Date: 20130313
  Receipt Date: 20130313
  Transmission Date: 20140127
  Serious: Yes (Hospitalization)
  Sender: FDA-Public Use
  Company Number: AUR-APL-2013-02097

PATIENT
  Age: 14 Month
  Sex: Female

DRUGS (2)
  1. CEFTRIAXONE (CEFTRIAXONE) [Suspect]
     Indication: OTITIS MEDIA
  2. AZITHROMYCIN (AZITHROMYCIN) [Suspect]

REACTIONS (2)
  - Tachycardia [None]
  - Acute haemorrhagic oedema of infancy [None]
